FAERS Safety Report 19818786 (Version 1)
Quarter: 2021Q3

REPORT INFORMATION
  Report Type: Spontaneous
  Country: CA (occurrence: CA)
  Receive Date: 20210912
  Receipt Date: 20210912
  Transmission Date: 20211014
  Serious: Yes (Life-Threatening, Other)
  Sender: FDA-Public Use
  Company Number: CA-TEVA-2021-CA-1951102

PATIENT
  Age: 9 Month
  Sex: Male

DRUGS (12)
  1. FLUCONAZOLE. [Concomitant]
     Active Substance: FLUCONAZOLE
  2. HYDROCORTISONE. [Concomitant]
     Active Substance: HYDROCORTISONE
  3. CHOLECALCIFEROL [Concomitant]
     Active Substance: CHOLECALCIFEROL
  4. VANCOMYCIN [Concomitant]
     Active Substance: VANCOMYCIN
  5. URSODEOXYCHOLIC ACID [Concomitant]
     Active Substance: URSODIOL
  6. CEFTAZIDIME. [Concomitant]
     Active Substance: CEFTAZIDIME
  7. FAMOTIDINE. [Concomitant]
     Active Substance: FAMOTIDINE
  8. ACYCLOVIR. [Concomitant]
     Active Substance: ACYCLOVIR
  9. CARBOPLATIN. [Suspect]
     Active Substance: CARBOPLATIN
     Indication: TRANSPLANT
     Dosage: 468 MILLIGRAM DAILY;
     Route: 042
  10. THIOTEPA. [Suspect]
     Active Substance: THIOTEPA
     Indication: TRANSPLANT
     Dosage: 1104 MILLIGRAM DAILY;
     Route: 042
  11. PENTAMIDINE ISETHIONATE INJ 300MG/VIAL BP [Concomitant]
  12. ONDANSETRON [Concomitant]
     Active Substance: ONDANSETRON

REACTIONS (7)
  - Aplastic anaemia [Recovered/Resolved]
  - Diarrhoea [Recovered/Resolved]
  - Neutrophil count decreased [Recovered/Resolved]
  - Mucosal inflammation [Recovered/Resolved]
  - Platelet count decreased [Recovered/Resolved]
  - Haemoglobin decreased [Recovered/Resolved]
  - White blood cell count decreased [Recovered/Resolved]
